FAERS Safety Report 17450224 (Version 1)
Quarter: 2020Q1

REPORT INFORMATION
  Report Type: Spontaneous
  Country: US (occurrence: US)
  Receive Date: 20200210
  Receipt Date: 20200210
  Transmission Date: 20200409
  Serious: Yes (Hospitalization)
  Sender: FDA-Public Use
  Company Number: None

PATIENT
  Age: 54 Year
  Sex: Female

DRUGS (33)
  1. AMANTADINE. [Concomitant]
     Active Substance: AMANTADINE HYDROCHLORIDE
  2. RESTASIS [Concomitant]
     Active Substance: CYCLOSPORINE
  3. MIDODRINE [Concomitant]
     Active Substance: MIDODRINE
  4. OMEPRAZOLE. [Concomitant]
     Active Substance: OMEPRAZOLE
  5. DALFAMPRIDINE  10MG [Suspect]
     Active Substance: DALFAMPRIDINE
     Dosage: ?          OTHER FREQUENCY:Q12H;?
     Route: 048
     Dates: start: 20140225
  6. LEVOTHYROXINE. [Concomitant]
     Active Substance: LEVOTHYROXINE
  7. TIZANIDINE. [Concomitant]
     Active Substance: TIZANIDINE
  8. ATORVASTATIN [Concomitant]
     Active Substance: ATORVASTATIN
  9. NAPROXEN. [Concomitant]
     Active Substance: NAPROXEN
  10. TRAZODONE [Concomitant]
     Active Substance: TRAZODONE HYDROCHLORIDE
  11. COPAXONE [Concomitant]
     Active Substance: GLATIRAMER ACETATE
  12. ROPINIROLE. [Concomitant]
     Active Substance: ROPINIROLE
  13. GABAPENTIN. [Concomitant]
     Active Substance: GABAPENTIN
  14. MORPHINE [Concomitant]
     Active Substance: MORPHINE
  15. VITAMIN D [Concomitant]
     Active Substance: VITAMIN D NOS
  16. ESTRADIOL. [Concomitant]
     Active Substance: ESTRADIOL
  17. TAMIFLU [Concomitant]
     Active Substance: OSELTAMIVIR PHOSPHATE
  18. ROBITUSSIN (GUAIFENESIN) [Concomitant]
     Active Substance: GUAIFENESIN
  19. ENALAPRIL [Concomitant]
     Active Substance: ENALAPRIL
  20. FLUDROCORT [Concomitant]
  21. ATENOLOL. [Concomitant]
     Active Substance: ATENOLOL
  22. EXELON [Concomitant]
     Active Substance: RIVASTIGMINE TARTRATE
  23. CENTRUM SILV [Concomitant]
  24. AMITRIPTYLINE [Concomitant]
     Active Substance: AMITRIPTYLINE
  25. OXYCODONE [Concomitant]
     Active Substance: OXYCODONE
  26. LORATADINE. [Concomitant]
     Active Substance: LORATADINE
  27. DIAZEPAM. [Concomitant]
     Active Substance: DIAZEPAM
  28. PERCOCET [Concomitant]
     Active Substance: ACETAMINOPHEN\OXYCODONE HYDROCHLORIDE
  29. ONDANSETRON [Concomitant]
     Active Substance: ONDANSETRON
  30. BACLOFEN. [Concomitant]
     Active Substance: BACLOFEN
  31. DULOXETINE. [Concomitant]
     Active Substance: DULOXETINE
  32. GLIPIZIDE. [Concomitant]
     Active Substance: GLIPIZIDE
  33. FARXIGA [Concomitant]
     Active Substance: DAPAGLIFLOZIN PROPANEDIOL

REACTIONS (2)
  - Transient ischaemic attack [None]
  - Disease recurrence [None]

NARRATIVE: CASE EVENT DATE: 20200115
